FAERS Safety Report 9515133 (Version 1)
Quarter: 2013Q3

REPORT INFORMATION
  Report Type: Spontaneous
  Country: US (occurrence: None)
  Receive Date: 20130909
  Receipt Date: 20130909
  Transmission Date: 20140515
  Serious: Yes (Death, Life-Threatening, Hospitalization, Other)
  Sender: FDA-Public Use
  Company Number: CO-OR-JP-2013-038

PATIENT
  Age: 95 Year
  Sex: Female

DRUGS (8)
  1. PREDNISOLONE [Suspect]
     Indication: DYSPNOEA
  2. PREDNISOLONE [Suspect]
     Indication: DYSPNOEA
  3. METHYLPREDNISOLONE (METHYLPREDNISOLONE) [Suspect]
     Indication: DYSPNOEA
  4. CEFTRIAXONE [Concomitant]
  5. MEROPENEM [Concomitant]
  6. AZITHROMYCIN [Concomitant]
  7. SULFAMETHOXAZOLE/-TRIMETHOPRIM [Concomitant]
  8. METHYLPREDNISOLONE [Suspect]

REACTIONS (7)
  - Bronchopulmonary aspergillosis [None]
  - Respiratory failure [None]
  - Hypoxia [None]
  - Depressed level of consciousness [None]
  - Pneumocystis jirovecii pneumonia [None]
  - Pneumothorax [None]
  - Multi-organ failure [None]
